FAERS Safety Report 7521871-6 (Version None)
Quarter: 2011Q2

REPORT INFORMATION
  Report Type: 
  Country: None (occurrence: None)
  Receive Date: 20110524
  Receipt Date: 20110511
  Transmission Date: 20111010
  Serious: Yes (Other)
  Sender: FDA-Public Use
  Company Number: DSA_46714_2011

PATIENT
  Age: 64 Year
  Sex: Female

DRUGS (6)
  1. ACETYLCYSTEINE [Concomitant]
  2. OMEPRAZOLE [Concomitant]
  3. INSULATARD /00646002/ [Concomitant]
  4. METFORMIN ACTAVIS [Concomitant]
  5. VOLTAREN [Concomitant]
  6. ENALAPRIL MALEATE [Suspect]
     Indication: ESSENTIAL HYPERTENSION
     Dosage: (5 MG QD ORAL)
     Route: 048
     Dates: start: 20100524, end: 20100624

REACTIONS (2)
  - SUICIDAL IDEATION [None]
  - DEPRESSION [None]
